FAERS Safety Report 5277075-3 (Version None)
Quarter: 2007Q1

REPORT INFORMATION
  Report Type: 
  Country: None (occurrence: None)
  Receive Date: 20070327
  Receipt Date: 20070316
  Transmission Date: 20070707
  Serious: Yes (Disabling)
  Sender: FDA-Public Use
  Company Number: PHHO2007GB04918

PATIENT
  Age: 56 Year

DRUGS (3)
  1. ZOLEDRONATE [Suspect]
     Indication: METASTASES TO BONE
     Dosage: 4MG EVERY 3 WEEKS
     Route: 042
     Dates: start: 20060719, end: 20070121
  2. DOCETAXEL [Suspect]
     Route: 042
     Dates: start: 20060719
  3. ZOLADEX [Concomitant]
     Dates: start: 20060705

REACTIONS (1)
  - OSTEONECROSIS [None]
